FAERS Safety Report 8886790 (Version 1)
Quarter: 2012Q4

REPORT INFORMATION
  Report Type: Report from Study
  Country: JP (occurrence: JP)
  Receive Date: 20121105
  Receipt Date: 20121105
  Transmission Date: 20130627
  Serious: Yes (Hospitalization)
  Sender: FDA-Public Use
  Company Number: JP-VERTEX PHARMACEUTICAL INC.-AE-2012-008465

PATIENT
  Age: 52 Year
  Sex: Male

DRUGS (7)
  1. TELAVIC [Suspect]
     Indication: HEPATITIS C
     Route: 048
     Dates: start: 20120222, end: 20120508
  2. PEGINTERFERON ALFA-2B [Suspect]
     Indication: CHRONIC HEPATITIS C
     Route: 051
     Dates: start: 20120222, end: 20120501
  3. REBETOL [Suspect]
     Indication: CHRONIC HEPATITIS C
     Route: 048
     Dates: start: 20120222, end: 20120228
  4. REBETOL [Suspect]
     Dosage: 400 mg, UNK
     Route: 048
     Dates: start: 20120229, end: 20120403
  5. REBETOL [Suspect]
     Dosage: 600 mg, UNK
     Route: 048
     Dates: start: 20120404, end: 20120508
  6. FAMOTIDINE [Concomitant]
     Route: 048
     Dates: start: 20120222, end: 20120401
  7. LOXOPROFEN [Concomitant]
     Route: 048
     Dates: start: 20120222, end: 20120401

REACTIONS (1)
  - Pneumonia [Recovered/Resolved]
